FAERS Safety Report 4662640-4 (Version None)
Quarter: 2005Q2

REPORT INFORMATION
  Report Type: 
  Country: None (occurrence: None)
  Receive Date: 20050513
  Receipt Date: 20050513
  Transmission Date: 20051028
  Serious: Yes (Death, Hospitalization)
  Sender: FDA-Public Use
  Company Number: None

PATIENT
  Age: 72 Year
  Sex: Male
  Weight: 83.2 kg

DRUGS (7)
  1. ERLOTINIB    150MG [Suspect]
     Indication: NEOPLASM MALIGNANT
     Dosage: 150MG  QDAY   ORAL
     Route: 048
     Dates: start: 20050427, end: 20050507
  2. ERLOTINIB    150MG [Suspect]
     Indication: RESPIRATORY DISORDER
     Dosage: 150MG  QDAY   ORAL
     Route: 048
     Dates: start: 20050427, end: 20050507
  3. PROPRANOLOL [Concomitant]
  4. GUAIFENESIN [Concomitant]
  5. HYDROXYZINE [Concomitant]
  6. ALLOPURINOL [Concomitant]
  7. LEVAQUIN [Concomitant]

REACTIONS (11)
  - CHEST X-RAY ABNORMAL [None]
  - CONDITION AGGRAVATED [None]
  - DYSPNOEA [None]
  - DYSPNOEA AT REST [None]
  - DYSPNOEA EXERTIONAL [None]
  - HYPOXIA [None]
  - INFECTION [None]
  - NEOPLASM MALIGNANT [None]
  - PULMONARY TOXICITY [None]
  - RESPIRATORY FAILURE [None]
  - SOMNOLENCE [None]
